FAERS Safety Report 7769537-1 (Version None)
Quarter: 2011Q3

REPORT INFORMATION
  Report Type: 
  Country: None (occurrence: None)
  Receive Date: 20110922
  Receipt Date: 20110125
  Transmission Date: 20111222
  Serious: No
  Sender: FDA-Public Use
  Company Number: US-ASTRAZENECA-2011SE04619

PATIENT
  Age: 36 Year
  Sex: Male
  Weight: 79.4 kg

DRUGS (4)
  1. SEROQUEL XR [Suspect]
     Route: 048
     Dates: start: 20100101
  2. COPAXONE [Concomitant]
  3. SEROQUEL XR [Suspect]
     Route: 048
     Dates: start: 20100101
  4. LEXAPRO [Concomitant]

REACTIONS (3)
  - LETHARGY [None]
  - BRADYPHRENIA [None]
  - INCORRECT DRUG DOSAGE FORM ADMINISTERED [None]
